FAERS Safety Report 9205657 (Version 1)
Quarter: 2013Q2

REPORT INFORMATION
  Report Type: Spontaneous
  Country: US (occurrence: US)
  Receive Date: 20130403
  Receipt Date: 20130403
  Transmission Date: 20140414
  Serious: No
  Sender: FDA-Public Use
  Company Number: US-BIOGENIDEC-2013BI029096

PATIENT
  Age: 50 Year
  Sex: Female

DRUGS (15)
  1. TYSABRI [Suspect]
     Indication: MULTIPLE SCLEROSIS
     Route: 042
     Dates: start: 20080822
  2. ACETAMINOPHEN [Concomitant]
     Route: 048
     Dates: start: 20110407
  3. AMBIEN [Concomitant]
     Route: 048
     Dates: start: 20120221
  4. BENADRYL [Concomitant]
     Route: 048
  5. COUMADIN [Concomitant]
     Route: 048
     Dates: start: 20110328
  6. DITROPAN XL [Concomitant]
     Route: 048
     Dates: start: 20120221
  7. FLEET ENEMA [Concomitant]
     Route: 054
     Dates: start: 20110509
  8. HYDROCODONE-ACETAMINOPHEN [Concomitant]
     Route: 048
     Dates: start: 20111129
  9. LOMOTIL [Concomitant]
     Route: 048
     Dates: start: 20100920
  10. MACROBID [Concomitant]
     Route: 048
     Dates: start: 20110301
  11. METHOCARBAMOL [Concomitant]
     Route: 048
     Dates: start: 20120412
  12. MIRALAX [Concomitant]
     Route: 048
     Dates: start: 20110509
  13. NORTIPTYLINE [Concomitant]
     Route: 048
     Dates: start: 20120409
  14. TRAMADOL [Concomitant]
     Dates: start: 20120116
  15. WARFARIN [Concomitant]
     Route: 048
     Dates: start: 20120504

REACTIONS (13)
  - Depression [Unknown]
  - Polydipsia [Unknown]
  - Back pain [Unknown]
  - Paraesthesia [Unknown]
  - Hypoaesthesia [Unknown]
  - Muscle spasms [Unknown]
  - Bladder disorder [Unknown]
  - Asthenia [Unknown]
  - Constipation [Unknown]
  - Headache [Unknown]
  - Rash [Unknown]
  - Fatigue [Unknown]
  - Urinary tract infection [Unknown]
